FAERS Safety Report 11942779 (Version 1)
Quarter: 2016Q1

REPORT INFORMATION
  Report Type: Spontaneous
  Country: US (occurrence: US)
  Receive Date: 20160125
  Receipt Date: 20160125
  Transmission Date: 20160526
  Serious: No
  Sender: FDA-Public Use
  Company Number: US-UNITED THERAPEUTICS-UNT-2015-009275

PATIENT
  Sex: Female
  Weight: 117.91 kg

DRUGS (3)
  1. REMODULIN [Suspect]
     Active Substance: TREPROSTINIL
     Dosage: 0.031 ?G/KG/MIN, CONTINUING
     Route: 041
  2. REMODULIN [Suspect]
     Active Substance: TREPROSTINIL
     Indication: PULMONARY HYPERTENSION
     Dosage: 0.032 ?G/KG/MIN, CONTINUING
     Route: 041
     Dates: start: 20131202
  3. REVATIO [Concomitant]
     Active Substance: SILDENAFIL CITRATE
     Indication: PRODUCT USED FOR UNKNOWN INDICATION

REACTIONS (6)
  - Hot flush [Unknown]
  - Pain in extremity [Unknown]
  - Pain in jaw [Unknown]
  - Anxiety [Unknown]
  - Dyspnoea [Unknown]
  - Feeling jittery [Unknown]
